FAERS Safety Report 20079564 (Version 1)
Quarter: 2021Q4

REPORT INFORMATION
  Report Type: Spontaneous
  Country: US (occurrence: US)
  Receive Date: 20211117
  Receipt Date: 20211117
  Transmission Date: 20220303
  Serious: No
  Sender: FDA-Public Use
  Company Number: US-SANOFI-00845396

PATIENT
  Age: 69 Year
  Sex: Male

DRUGS (1)
  1. DUPIXENT [Suspect]
     Active Substance: DUPILUMAB
     Indication: Asthma
     Dosage: 300 MG, QOW
     Dates: start: 2020

REACTIONS (9)
  - Illness [Recovering/Resolving]
  - Red blood cell count decreased [Recovering/Resolving]
  - Blood test abnormal [Recovering/Resolving]
  - Laboratory test abnormal [Recovering/Resolving]
  - Urinary tract infection [Recovering/Resolving]
  - Weight decreased [Recovering/Resolving]
  - Therapeutic response unexpected [Unknown]
  - Product use issue [Unknown]
  - Ill-defined disorder [Recovering/Resolving]
